FAERS Safety Report 7292672-1 (Version None)
Quarter: 2011Q1

REPORT INFORMATION
  Report Type: 
  Country: None (occurrence: None)
  Receive Date: 20110203
  Receipt Date: 20110118
  Transmission Date: 20110831
  Serious: Yes (Death)
  Sender: FDA-Public Use
  Company Number: B069491A

PATIENT
  Age: 39 Year
  Sex: Male

DRUGS (5)
  1. GABAPENTIN (FORMULATION UNKNOWN) (GENERIC) (GABAPENTIN) [Suspect]
     Dosage: ORAL
     Route: 048
  2. QUETIAPINE (FORMULATION UNKNOWN (GENERIC) (QUETIAPINE FUMARATE) [Suspect]
     Dosage: ORAL
     Route: 048
  3. BUPROPION HYDROCHLORIDE [Suspect]
     Dosage: ORAL
     Route: 048
  4. ETHANOL (FORMULATION UNKNOWN) (ALCOHOL) [Suspect]
     Dosage: ORAL
     Route: 048
  5. FLUOXETINE (FORMULATION UNKNOWN) (GENERIC) (FLUOXETINE) [Suspect]
     Dosage: ORAL
     Route: 048

REACTIONS (1)
  - COMPLETED SUICIDE [None]
